FAERS Safety Report 12360438 (Version 2)
Quarter: 2016Q2

REPORT INFORMATION
  Report Type: Spontaneous
  Country: FR (occurrence: FR)
  Receive Date: 20160512
  Receipt Date: 20160517
  Transmission Date: 20160815
  Serious: Yes (Hospitalization, Other)
  Sender: FDA-Public Use
  Company Number: FR-ROCHE-1748191

PATIENT
  Age: 68 Year
  Sex: Male
  Weight: 79 kg

DRUGS (5)
  1. COTELLIC [Suspect]
     Active Substance: COBIMETINIB
     Indication: METASTATIC MALIGNANT MELANOMA
     Route: 048
     Dates: start: 20160404, end: 20160416
  2. ZELBORAF [Suspect]
     Active Substance: VEMURAFENIB
     Indication: METASTATIC MALIGNANT MELANOMA
     Route: 048
     Dates: start: 20160404
  3. TAHOR [Concomitant]
     Active Substance: ATORVASTATIN CALCIUM
     Dosage: 1DOSE IN THE EVENING
     Route: 048
  4. COTELLIC [Suspect]
     Active Substance: COBIMETINIB
     Dosage: DURING HOSPITALIZATION PERIOD FROM 21/APR/2016 TO 25/APR/2016, 3 TABLETS PER DAY FOR 3 WEEKS THEN ON
     Route: 048
  5. ZELBORAF [Suspect]
     Active Substance: VEMURAFENIB
     Dosage: DURING HOSPITALIZATION PERIOD FROM 21/APR/2016 TO 25/APR/2016, 4 DOSES IN THE MORNING AND 4 DOSES IN
     Route: 048

REACTIONS (9)
  - Rash [Recovering/Resolving]
  - Nausea [Recovered/Resolved]
  - Decreased appetite [Recovered/Resolved]
  - Neutrophilic dermatosis [Unknown]
  - Vomiting [Recovered/Resolved]
  - Weight decreased [Recovered/Resolved]
  - Visual acuity reduced [Recovered/Resolved]
  - Hypokalaemia [Recovered/Resolved]
  - Diarrhoea [Recovered/Resolved]

NARRATIVE: CASE EVENT DATE: 20160416
